FAERS Safety Report 15533571 (Version 1)
Quarter: 2018Q4

REPORT INFORMATION
  Report Type: Spontaneous
  Country: FI (occurrence: FI)
  Receive Date: 20181019
  Receipt Date: 20181019
  Transmission Date: 20190205
  Serious: Yes (Disabling)
  Sender: FDA-Public Use
  Company Number: FI-OTSUKA-2018_033653

PATIENT
  Age: 15 Year
  Sex: Male

DRUGS (1)
  1. ABILIFY [Suspect]
     Active Substance: ARIPIPRAZOLE
     Indication: TOURETTE^S DISORDER
     Dosage: 15 MG, QD
     Route: 048
     Dates: start: 20161025, end: 20180831

REACTIONS (15)
  - Sleep apnoea syndrome [Unknown]
  - Blood glucose increased [Unknown]
  - Compulsive shopping [Unknown]
  - Salivary hypersecretion [Unknown]
  - Dizziness [Unknown]
  - Diarrhoea [Unknown]
  - Vision blurred [Unknown]
  - Product use in unapproved indication [Unknown]
  - Gambling disorder [Unknown]
  - Visual impairment [Unknown]
  - Depression [Unknown]
  - Overweight [Unknown]
  - Fatigue [Unknown]
  - Headache [Unknown]
  - Restlessness [Unknown]

NARRATIVE: CASE EVENT DATE: 2016
